FAERS Safety Report 19181855 (Version 18)
Quarter: 2025Q1

REPORT INFORMATION
  Report Type: Report from Study
  Country: US (occurrence: US)
  Receive Date: 20210426
  Receipt Date: 20250305
  Transmission Date: 20250409
  Serious: Yes (Hospitalization, Other)
  Sender: TAKEDA
  Company Number: US-TAKEDA-US202005709

PATIENT
  Sex: Male
  Weight: 109 kg

DRUGS (31)
  1. HUMAN IMMUNOGLOBULIN G\HYALURONIDASE RECOMBINANT HUMAN [Suspect]
     Active Substance: HUMAN IMMUNOGLOBULIN G\HYALURONIDASE (HUMAN RECOMBINANT)
     Indication: Immunodeficiency common variable
     Dosage: 50 GRAM, Q2WEEKS
     Dates: start: 20150125
  2. HUMAN IMMUNOGLOBULIN G\HYALURONIDASE RECOMBINANT HUMAN [Suspect]
     Active Substance: HUMAN IMMUNOGLOBULIN G\HYALURONIDASE (HUMAN RECOMBINANT)
     Indication: B-lymphocyte abnormalities
     Dosage: 45 GRAM, Q2WEEKS
     Dates: start: 20150223
  3. HUMAN IMMUNOGLOBULIN G\HYALURONIDASE RECOMBINANT HUMAN [Suspect]
     Active Substance: HUMAN IMMUNOGLOBULIN G\HYALURONIDASE (HUMAN RECOMBINANT)
     Dosage: 45 GRAM, Q2WEEKS
  4. HUMAN IMMUNOGLOBULIN G\HYALURONIDASE RECOMBINANT HUMAN [Suspect]
     Active Substance: HUMAN IMMUNOGLOBULIN G\HYALURONIDASE (HUMAN RECOMBINANT)
     Dosage: 50 GRAM, Q2WEEKS
  5. SODIUM CHLORIDE [Concomitant]
     Active Substance: SODIUM CHLORIDE
  6. ACETAMINOPHEN [Concomitant]
     Active Substance: ACETAMINOPHEN
  7. DYMISTA [Concomitant]
     Active Substance: AZELASTINE HYDROCHLORIDE\FLUTICASONE PROPIONATE
  8. ZYRTEC [Concomitant]
     Active Substance: CETIRIZINE HYDROCHLORIDE
  9. PEPCID [Concomitant]
     Active Substance: FAMOTIDINE
  10. BUDESONIDE [Concomitant]
     Active Substance: BUDESONIDE
  11. VIRTUSSIN AC [Concomitant]
     Active Substance: CODEINE PHOSPHATE\GUAIFENESIN
  12. AVODART [Concomitant]
     Active Substance: DUTASTERIDE
  13. NEXIUM [Concomitant]
     Active Substance: ESOMEPRAZOLE MAGNESIUM
  14. LIDOCAINE [Concomitant]
     Active Substance: LIDOCAINE
  15. AZELASTINE HYDROCHLORIDE [Concomitant]
     Active Substance: AZELASTINE HYDROCHLORIDE
  16. ANTARA [Concomitant]
     Active Substance: FENOFIBRATE
  17. COMBIVENT [Concomitant]
     Active Substance: ALBUTEROL SULFATE\IPRATROPIUM BROMIDE
  18. TESSALON [Concomitant]
     Active Substance: BENZONATATE
  19. DIPHENHYDRAMINE HYDROCHLORIDE [Concomitant]
     Active Substance: DIPHENHYDRAMINE HYDROCHLORIDE
  20. BENICAR [Concomitant]
     Active Substance: OLMESARTAN MEDOXOMIL
  21. ACETYLCYSTEINE [Concomitant]
     Active Substance: ACETYLCYSTEINE
  22. OMEPRAZOLE [Concomitant]
     Active Substance: OMEPRAZOLE
  23. ALBUTEROL\IPRATROPIUM [Concomitant]
     Active Substance: ALBUTEROL\IPRATROPIUM
  24. ASPIRIN [Concomitant]
     Active Substance: ASPIRIN
  25. PERFOROMIST [Concomitant]
     Active Substance: FORMOTEROL FUMARATE DIHYDRATE
  26. FENOFIBRATE [Concomitant]
     Active Substance: FENOFIBRATE
  27. COLISTIMETHATE [Concomitant]
     Active Substance: COLISTIMETHATE SODIUM
  28. DUONEB [Concomitant]
     Active Substance: ALBUTEROL SULFATE\IPRATROPIUM BROMIDE
  29. DIPHENHYDRAMINE [Concomitant]
     Active Substance: DIPHENHYDRAMINE
  30. EPINEPHRINE [Concomitant]
     Active Substance: EPINEPHRINE
  31. AMMONIUM CHLORIDE\DEXTROMETHORPHAN\SODIUM CITRATE [Concomitant]
     Active Substance: AMMONIUM CHLORIDE\DEXTROMETHORPHAN\SODIUM CITRATE

REACTIONS (25)
  - Gastric ulcer haemorrhage [Unknown]
  - Loss of consciousness [Unknown]
  - Fall [Unknown]
  - Pleural effusion [Unknown]
  - Pericardial effusion [Unknown]
  - Pneumonia escherichia [Unknown]
  - Prostate infection [Unknown]
  - Pharyngitis bacterial [Unknown]
  - Obstruction [Unknown]
  - Sinus disorder [Unknown]
  - Herpes zoster [Unknown]
  - Memory impairment [Unknown]
  - Rhinitis [Unknown]
  - Multiple allergies [Not Recovered/Not Resolved]
  - Product dose omission issue [Unknown]
  - Sinusitis [Unknown]
  - Inappropriate schedule of product administration [Unknown]
  - Pain [Unknown]
  - Traumatic lung injury [Not Recovered/Not Resolved]
  - Escherichia infection [Not Recovered/Not Resolved]
  - Allergic sinusitis [Unknown]
  - Rhinorrhoea [Unknown]
  - Cough [Unknown]
  - Infusion site haemorrhage [Unknown]
  - Headache [Unknown]

NARRATIVE: CASE EVENT DATE: 20150101
